FAERS Safety Report 5895133-7 (Version None)
Quarter: 2008Q3

REPORT INFORMATION
  Report Type: 
  Country: None (occurrence: None)
  Receive Date: 20080924
  Receipt Date: 20080910
  Transmission Date: 20090109
  Serious: Yes (Other)
  Sender: FDA-Public Use
  Company Number: GB-ELI_LILLY_AND_COMPANY-GB200809003013

PATIENT
  Age: 8 Year
  Sex: Male
  Weight: 27.8 kg

DRUGS (2)
  1. STRATTERA [Suspect]
     Indication: ATTENTION DEFICIT/HYPERACTIVITY DISORDER
     Dosage: 18 MG, UNKNOWN
     Route: 048
     Dates: start: 20080730, end: 20080807
  2. STRATTERA [Suspect]
     Dosage: 10 MG, UNKNOWN
     Route: 048
     Dates: start: 20080808, end: 20080812

REACTIONS (5)
  - BODY TEMPERATURE INCREASED [None]
  - HEADACHE [None]
  - INSOMNIA [None]
  - PAIN [None]
  - SCREAMING [None]
